FAERS Safety Report 5745300-8 (Version None)
Quarter: 2008Q2

REPORT INFORMATION
  Report Type: 
  Country: None (occurrence: None)
  Receive Date: 20080520
  Receipt Date: 20080509
  Transmission Date: 20081010
  Serious: No
  Sender: FDA-Public Use
  Company Number: 07H-163-0313092-00

PATIENT
  Sex: Female

DRUGS (1)
  1. HEPARIN SODIUM INJECTION [Suspect]
     Dosage: INTRAVENOUS
     Route: 042
     Dates: start: 20070802

REACTIONS (2)
  - ACTIVATED PARTIAL THROMBOPLASTIN TIME ABNORMAL [None]
  - INCORRECT DOSE ADMINISTERED [None]
